FAERS Safety Report 7489525-2 (Version None)
Quarter: 2011Q2

REPORT INFORMATION
  Report Type: 
  Country: None (occurrence: None)
  Receive Date: 20110519
  Receipt Date: 20101118
  Transmission Date: 20111010
  Serious: Yes (Hospitalization)
  Sender: FDA-Public Use
  Company Number: DE-AMGEN-DEUCT2010004042

PATIENT
  Age: 44 Year
  Sex: Female

DRUGS (7)
  1. ENBREL [Suspect]
     Indication: PSORIASIS
     Dosage: 50 MG, 2 TIMES/WK
     Dates: start: 20091113
  2. ENBREL [Suspect]
     Dosage: UNK
     Dates: start: 20101103
  3. LIORESAL [Concomitant]
     Dosage: UNK
  4. XAMIOL                             /01643401/ [Concomitant]
     Dosage: UNK
  5. MORPHINE [Concomitant]
     Dosage: UNK
  6. METHOTREXATE [Concomitant]
     Dosage: 25 MG, 1X/DAY
  7. DAIVOBET [Concomitant]
     Dosage: UNK

REACTIONS (2)
  - PURULENCE [None]
  - PROCEDURAL SITE REACTION [None]
